FAERS Safety Report 6199479-7 (Version None)
Quarter: 2009Q2

REPORT INFORMATION
  Report Type: 
  Country: None (occurrence: None)
  Receive Date: 20090522
  Receipt Date: 20090518
  Transmission Date: 20091009
  Serious: Yes (Other)
  Sender: FDA-Public Use
  Company Number: CL-PFIZER INC-2009203686

PATIENT
  Age: 24 Year

DRUGS (1)
  1. CELEBREX [Suspect]
     Indication: PAIN
     Dosage: UNK
     Dates: start: 20090413, end: 20090423

REACTIONS (2)
  - ARTHRITIS [None]
  - GAIT DISTURBANCE [None]
